FAERS Safety Report 10683277 (Version 1)
Quarter: 2014Q4

REPORT INFORMATION
  Report Type: Spontaneous
  Country: US (occurrence: None)
  Receive Date: 20141229
  Receipt Date: 20141229
  Transmission Date: 20150529
  Serious: Yes (Other)
  Sender: FDA-Public Use
  Company Number: None

PATIENT
  Age: 61 Year
  Sex: Female
  Weight: 75.3 kg

DRUGS (2)
  1. SULFAMETHOXAZOLE/TMP DS [Suspect]
     Active Substance: SULFAMETHOXAZOLE\TRIMETHOPRIM
     Indication: SINUSITIS
     Dosage: 1PO TWICE A DAY X 10 DAYS TWICE DAILY TAKEN BY MOUTH
     Route: 048
     Dates: start: 20141108, end: 20141111
  2. SULFAMETHOXAZOLE/TMP DS [Suspect]
     Active Substance: SULFAMETHOXAZOLE\TRIMETHOPRIM
     Indication: BRONCHITIS
     Dosage: 1PO TWICE A DAY X 10 DAYS TWICE DAILY TAKEN BY MOUTH
     Route: 048
     Dates: start: 20141108, end: 20141111

REACTIONS (17)
  - Arthralgia [None]
  - Pain of skin [None]
  - Rash [None]
  - Skin swelling [None]
  - Cheilitis [None]
  - Swelling [None]
  - Pruritus [None]
  - Eye irritation [None]
  - Urticaria [None]
  - Lip swelling [None]
  - Rash pustular [None]
  - Erythema [None]
  - Stevens-Johnson syndrome [None]
  - Vision blurred [None]
  - Swelling face [None]
  - Dry skin [None]
  - Oral mucosal eruption [None]

NARRATIVE: CASE EVENT DATE: 20141121
